FAERS Safety Report 21958083 (Version 1)
Quarter: 2023Q1

REPORT INFORMATION
  Report Type: Spontaneous
  Country: US (occurrence: None)
  Receive Date: 20230203
  Receipt Date: 20230203
  Transmission Date: 20230418
  Serious: Yes (Other)
  Sender: FDA-Public Use
  Company Number: None

PATIENT
  Age: 91 Year
  Sex: Male

DRUGS (14)
  1. ABIRATERONE ACETATE [Suspect]
     Active Substance: ABIRATERONE ACETATE
     Indication: Metastases to bone
     Dosage: FREQUENCY : AS DIRECTED;?
     Route: 048
     Dates: start: 20230124, end: 202302
  2. ATIVAN TAB [Concomitant]
  3. CALCIUM [Concomitant]
     Active Substance: CALCIUM
  4. DILAUDID [Concomitant]
  5. HYDROCO/APAP TAB [Concomitant]
  6. MOBIC TAB [Concomitant]
  7. MORPHINE SUL INJ [Concomitant]
  8. VITAMINS [Concomitant]
     Active Substance: VITAMINS
  9. OMEGA 3 [Concomitant]
     Active Substance: CAPSAICIN
  10. PREDNISONE [Concomitant]
     Active Substance: PREDNISONE
  11. VENTOLIN HFA AER [Concomitant]
  12. VITAMIN C [Concomitant]
     Active Substance: ASCORBIC ACID
  13. XTANDI [Concomitant]
     Active Substance: ENZALUTAMIDE
  14. ZINC [Concomitant]
     Active Substance: ZINC

REACTIONS (6)
  - Hypersensitivity [None]
  - Near death experience [None]
  - Dyspnoea [None]
  - Erythema [None]
  - Pain [None]
  - Therapy cessation [None]

NARRATIVE: CASE EVENT DATE: 20230128
